FAERS Safety Report 7005273-7 (Version None)
Quarter: 2010Q3

REPORT INFORMATION
  Report Type: 
  Country: None (occurrence: None)
  Receive Date: 20100921
  Receipt Date: 20100916
  Transmission Date: 20110219
  Serious: Yes (Death)
  Sender: FDA-Public Use
  Company Number: US-ASTRAZENECA-2010SE43563

PATIENT
  Age: 23642 Day
  Sex: Male

DRUGS (2)
  1. ATACAND HCT [Suspect]
     Indication: HYPERTENSION
     Dosage: 16MG/12.5MG DAILY
     Route: 048
     Dates: start: 20090313
  2. CADUET [Suspect]
     Indication: HYPERTENSION
     Dosage: 16MG/12.5MG DAILY
     Route: 048
     Dates: start: 20090313

REACTIONS (1)
  - CARDIAC ARREST [None]
